FAERS Safety Report 7658247-7 (Version None)
Quarter: 2011Q3

REPORT INFORMATION
  Report Type: 
  Country: None (occurrence: None)
  Receive Date: 20110805
  Receipt Date: 20110728
  Transmission Date: 20111222
  Serious: Yes (Other)
  Sender: FDA-Public Use
  Company Number: US-US-EMD SERONO, INC.-7074066

PATIENT
  Sex: Female
  Weight: 53 kg

DRUGS (6)
  1. OXYCONTIN [Concomitant]
     Indication: PAIN
  2. PERCOCET [Concomitant]
     Indication: PAIN
  3. KEFLEX [Concomitant]
     Indication: URINARY INCONTINENCE
  4. CARDURA [Concomitant]
     Indication: URINARY RETENTION
  5. REBIF [Suspect]
     Indication: MULTIPLE SCLEROSIS
     Route: 058
     Dates: start: 20070727
  6. TYLENOL-500 [Concomitant]
     Indication: PREMEDICATION

REACTIONS (6)
  - INJECTION SITE ERYTHEMA [None]
  - MUSCLE SPASTICITY [None]
  - MUSCULAR WEAKNESS [None]
  - NODULE [None]
  - INJECTION SITE PAIN [None]
  - INJECTION SITE HAEMATOMA [None]
